FAERS Safety Report 17460819 (Version 1)
Quarter: 2020Q1

REPORT INFORMATION
  Report Type: Spontaneous
  Country: US (occurrence: US)
  Receive Date: 20200212
  Receipt Date: 20200212
  Transmission Date: 20200409
  Serious: No
  Sender: FDA-Public Use
  Company Number: None

PATIENT

DRUGS (1)
  1. HALOPERIDOL DECANOATE. [Suspect]
     Active Substance: HALOPERIDOL DECANOATE
     Indication: SCHIZOPHRENIA
     Dosage: ?          QUANTITY:2 DF DOSAGE FORM;?

REACTIONS (3)
  - Ill-defined disorder [None]
  - Drug intolerance [None]
  - Dizziness [None]

NARRATIVE: CASE EVENT DATE: 201910
